FAERS Safety Report 6923175-9 (Version None)
Quarter: 2010Q3

REPORT INFORMATION
  Report Type: 
  Country: None (occurrence: None)
  Receive Date: 20100813
  Receipt Date: 20100809
  Transmission Date: 20110219
  Serious: Yes (Other)
  Sender: FDA-Public Use
  Company Number: FR-BAYER-200812661GPV

PATIENT
  Age: 68 Year
  Sex: Male
  Weight: 69 kg

DRUGS (10)
  1. LEVITRA [Suspect]
     Indication: ERECTILE DYSFUNCTION
     Dosage: UNIT DOSE: 10 MG
     Route: 048
     Dates: start: 20100707
  2. LEVITRA [Suspect]
     Dosage: UNIT DOSE: 10 MG
     Route: 048
     Dates: start: 20100725
  3. LEVITRA [Suspect]
     Dosage: 3 TABLETS
     Route: 048
     Dates: start: 20100614, end: 20100618
  4. LEVITRA [Suspect]
     Dosage: UNIT DOSE: 10 MG
     Route: 048
     Dates: start: 20100705
  5. LEVITRA [Suspect]
     Dosage: 2 TABLETS
     Route: 048
     Dates: start: 20100625
  6. LEVITRA [Suspect]
     Dosage: UNIT DOSE: 10 MG
     Route: 048
     Dates: start: 20100731
  7. LEVITRA [Suspect]
     Dosage: UNIT DOSE: 10 MG
     Route: 048
     Dates: start: 20100702
  8. LEVITRA [Suspect]
     Dosage: 3 TABLETS
     Route: 048
     Dates: start: 20100619, end: 20100620
  9. LEVITRA [Suspect]
     Dosage: UNIT DOSE: 10 MG
     Route: 048
     Dates: start: 20100715
  10. LEVITRA [Suspect]
     Route: 065
     Dates: start: 20060501

REACTIONS (5)
  - BACK PAIN [None]
  - DYSPHONIA [None]
  - EYE PAIN [None]
  - PHARYNGEAL OEDEMA [None]
  - RASH MACULAR [None]
